FAERS Safety Report 16780272 (Version 1)
Quarter: 2019Q3

REPORT INFORMATION
  Report Type: Spontaneous
  Country: US (occurrence: US)
  Receive Date: 20190716
  Receipt Date: 20190716
  Transmission Date: 20191005
  Serious: Yes (Hospitalization)
  Sender: FDA-Public Use
  Company Number: None

PATIENT
  Age: 28 Year
  Sex: Male
  Weight: 116 kg

DRUGS (2)
  1. GEMCITABINE (38MG/ML) [Suspect]
     Active Substance: GEMCITABINE
     Indication: SARCOMA
     Route: 042
     Dates: start: 20190221
  2. RIBOCICLIB. [Suspect]
     Active Substance: RIBOCICLIB
     Indication: SARCOMA
     Route: 048
     Dates: start: 20190307

REACTIONS (4)
  - Hypoxia [None]
  - Pericardial effusion [None]
  - Syncope [None]
  - Cardiac tamponade [None]

NARRATIVE: CASE EVENT DATE: 20190708
